FAERS Safety Report 16561254 (Version 1)
Quarter: 2019Q3

REPORT INFORMATION
  Report Type: Other
  Country: CN (occurrence: CN)
  Receive Date: 20190711
  Receipt Date: 20190711
  Transmission Date: 20191004
  Serious: Yes (Hospitalization)
  Sender: FDA-Public Use
  Company Number: CN-AGG-01-2019-1027

PATIENT
  Age: 61 Year
  Sex: Male

DRUGS (11)
  1. AGGRASTAT [Suspect]
     Active Substance: TIROFIBAN HYDROCHLORIDE
     Indication: ANTIPLATELET THERAPY
     Dosage: 0.4 MCG/KG/MIN OVER 30 MIN
     Route: 040
  2. AGGRASTAT [Suspect]
     Active Substance: TIROFIBAN HYDROCHLORIDE
     Indication: ANTIPLATELET THERAPY
     Dosage: 0.1 MCG/KG/MIN FOR 24 HOURS
     Route: 041
  3. STATIN (ATORVASTATIN 20MG OR ROSUVASTATIN 10MG) [Concomitant]
     Dosage: ATORVASTATIN 20MG OR ROSUVASTATIN 10MG DAILY
     Route: 048
  4. RT-PA [Concomitant]
     Active Substance: ALTEPLASE
     Route: 042
  5. CLOPIDOGREL [Concomitant]
     Active Substance: CLOPIDOGREL BISULFATE
     Dosage: LOADING DOSE
     Route: 048
  6. CLOPIDOGREL [Concomitant]
     Active Substance: CLOPIDOGREL BISULFATE
     Dosage: PER DAY
     Route: 048
  7. STATIN (ATORVASTATIN 40MG OR ROSUVASTATIN 20MG) [Concomitant]
     Dosage: ATORVASTATIN 40MG OR ROSUVASTATIN 20MG ON ADMISSION
     Route: 048
  8. AGGRASTAT [Suspect]
     Active Substance: TIROFIBAN HYDROCHLORIDE
     Indication: ANTIPLATELET THERAPY
     Dosage: 0.15 MCG/KG/MIN FOR UP TO 36 HOURS
     Route: 041
  9. ASPIRIN. [Concomitant]
     Active Substance: ASPIRIN
     Dosage: PER DAY
     Route: 048
  10. AGGRASTAT [Suspect]
     Active Substance: TIROFIBAN HYDROCHLORIDE
     Indication: ANTIPLATELET THERAPY
     Dosage: 0.4 MCG/KG/MIN OVER 30 MIN (ADDITIONAL LOADING DOSE)
     Route: 040
  11. ASPIRIN. [Concomitant]
     Active Substance: ASPIRIN
     Dosage: LOADING DOSE
     Route: 048

REACTIONS (1)
  - Capsular warning syndrome [Recovered/Resolved]
